FAERS Safety Report 8354462-8 (Version None)
Quarter: 2012Q2

REPORT INFORMATION
  Report Type: 
  Country: None (occurrence: None)
  Receive Date: 20120511
  Receipt Date: 20120502
  Transmission Date: 20120825
  Serious: Yes (Hospitalization, Other)
  Sender: FDA-Public Use
  Company Number: CA-JNJFOC-20120503287

PATIENT
  Sex: Female

DRUGS (4)
  1. IMURAN [Concomitant]
     Route: 065
  2. REMICADE [Suspect]
     Indication: CROHN'S DISEASE
     Route: 042
     Dates: start: 20080624
  3. RABEPRAZOLE SODIUM [Concomitant]
     Route: 065
  4. GRAVOL TAB [Concomitant]
     Indication: NAUSEA
     Route: 065

REACTIONS (3)
  - NAUSEA [None]
  - CONFUSIONAL STATE [None]
  - URINARY TRACT INFECTION [None]
